FAERS Safety Report 7515586-8 (Version None)
Quarter: 2011Q2

REPORT INFORMATION
  Report Type: 
  Country: None (occurrence: None)
  Receive Date: 20110601
  Receipt Date: 20100712
  Transmission Date: 20111010
  Serious: Yes (Hospitalization, Other)
  Sender: FDA-Public Use
  Company Number: US-PFIZER INC-2010025747

PATIENT
  Sex: Female

DRUGS (1)
  1. CHANTIX [Suspect]
     Indication: SMOKING CESSATION THERAPY
     Dosage: 1 MG (STARTER PACK)
     Route: 048
     Dates: start: 20080215, end: 20080301

REACTIONS (7)
  - VISUAL IMPAIRMENT [None]
  - LOSS OF CONSCIOUSNESS [None]
  - INCOHERENT [None]
  - DISTURBANCE IN ATTENTION [None]
  - AMNESIA [None]
  - CONVULSION [None]
  - SPEECH DISORDER [None]
